FAERS Safety Report 10861128 (Version 1)
Quarter: 2015Q1

REPORT INFORMATION
  Report Type: Spontaneous
  Country: US (occurrence: None)
  Receive Date: 20150218
  Receipt Date: 20150218
  Transmission Date: 20150721
  Serious: Yes (Hospitalization)
  Sender: FDA-Public Use
  Company Number: None

PATIENT
  Age: 34 Year
  Sex: Female
  Weight: 91.17 kg

DRUGS (1)
  1. MEROPENEM 2G [Suspect]
     Active Substance: MEROPENEM
     Indication: URINARY TRACT INFECTION
     Route: 042

REACTIONS (2)
  - Pathogen resistance [None]
  - Urinary tract infection [None]

NARRATIVE: CASE EVENT DATE: 20141013
